FAERS Safety Report 17425723 (Version 1)
Quarter: 2020Q1

REPORT INFORMATION
  Report Type: Spontaneous
  Country: US (occurrence: US)
  Receive Date: 20200217
  Receipt Date: 20200217
  Transmission Date: 20200409
  Serious: Yes (Death)
  Sender: FDA-Public Use
  Company Number: US-VYERA PHARMACEUTICALS, LLC-2020VYE00007

PATIENT
  Age: 47 Year
  Sex: Male
  Weight: 62.59 kg

DRUGS (15)
  1. CALCIUM [Concomitant]
     Active Substance: CALCIUM
  2. DARAPRIM [Suspect]
     Active Substance: PYRIMETHAMINE
     Indication: TOXOPLASMOSIS
     Dosage: 50 MG, 1X/DAY
     Dates: start: 20190712
  3. ATOVAQUONE. [Concomitant]
     Active Substance: ATOVAQUONE
  4. DIVALPROEX [Concomitant]
     Active Substance: DIVALPROEX SODIUM
  5. GEMFIBROZIL. [Concomitant]
     Active Substance: GEMFIBROZIL
  6. ARTIFICIAL TEARS [Concomitant]
     Active Substance: GLYCERIN\HYPROMELLOSES\POLYETHYLENE GLYCOL 400
  7. QUETIAPINE. [Concomitant]
     Active Substance: QUETIAPINE
  8. GABAPENTIN. [Concomitant]
     Active Substance: GABAPENTIN
  9. BISACODYL. [Concomitant]
     Active Substance: BISACODYL
  10. VITAMIN D3 [Concomitant]
     Active Substance: CHOLECALCIFEROL
  11. LEUCOVORIN. [Concomitant]
     Active Substance: LEUCOVORIN
  12. MILK OF MAGNESIA [Concomitant]
     Active Substance: MAGNESIUM HYDROXIDE
  13. LEVETIRACETAM. [Concomitant]
     Active Substance: LEVETIRACETAM
  14. TRIUMEQ [Concomitant]
     Active Substance: ABACAVIR SULFATE\DOLUTEGRAVIR SODIUM\LAMIVUDINE
  15. ACETAMINOPHEN. [Concomitant]
     Active Substance: ACETAMINOPHEN

REACTIONS (2)
  - Off label use [Recovered/Resolved]
  - Death [Fatal]

NARRATIVE: CASE EVENT DATE: 20190712
